FAERS Safety Report 4761544-6 (Version None)
Quarter: 2005Q3

REPORT INFORMATION
  Report Type: 
  Country: None (occurrence: None)
  Receive Date: 20050906
  Receipt Date: 20050823
  Transmission Date: 20060218
  Serious: Yes (Hospitalization, Other)
  Sender: FDA-Public Use
  Company Number: PHBS2005ES12322

PATIENT
  Age: 45 Year
  Sex: Female

DRUGS (5)
  1. MOSEGOR [Suspect]
     Route: 065
  2. TEGRETOL [Suspect]
     Indication: EPILEPSY
     Route: 065
  3. NOIAFREN [Concomitant]
     Route: 065
  4. SINTROM [Concomitant]
     Route: 065
  5. MOSEGOR [Suspect]
     Dosage: 0.5 TABLET/D
     Route: 048

REACTIONS (14)
  - AGGRESSION [None]
  - ANTIPHOSPHOLIPID SYNDROME [None]
  - BLOOD CHOLESTEROL [None]
  - CONVULSION [None]
  - DEPRESSION [None]
  - DRUG WITHDRAWAL SYNDROME [None]
  - HAEMOLYTIC ANAEMIA [None]
  - HYPONATRAEMIA [None]
  - OSTEOARTHRITIS [None]
  - PLATELET COUNT DECREASED [None]
  - SYSTEMIC LUPUS ERYTHEMATOSUS [None]
  - THROMBOSIS [None]
  - TRANSAMINASES ABNORMAL [None]
  - WEIGHT INCREASED [None]
